FAERS Safety Report 15916803 (Version 1)
Quarter: 2019Q1

REPORT INFORMATION
  Report Type: Spontaneous
  Country: US (occurrence: US)
  Receive Date: 20190205
  Receipt Date: 20190205
  Transmission Date: 20190417
  Serious: Yes (Life-Threatening, Other)
  Sender: FDA-Public Use
  Company Number: None

PATIENT
  Age: 54 Year
  Sex: Male

DRUGS (1)
  1. MAENG DA POWDER KRATOM HERBAL DIETARY SUPPLEMENT [Suspect]
     Active Substance: HERBALS\MITRAGYNINE
     Route: 048
     Dates: start: 20190123, end: 20190123

REACTIONS (3)
  - Cerebral thrombosis [None]
  - Product substitution issue [None]
  - Cerebral haemorrhage [None]

NARRATIVE: CASE EVENT DATE: 20190124
